FAERS Safety Report 7487620-5 (Version None)
Quarter: 2011Q2

REPORT INFORMATION
  Report Type: 
  Country: None (occurrence: None)
  Receive Date: 20110518
  Receipt Date: 20110502
  Transmission Date: 20111010
  Serious: No
  Sender: FDA-Public Use
  Company Number: US-B.I. PHARMACEUTICALS,INC./RIDGEFIELD-2011-BP-12228BP

PATIENT
  Sex: Female

DRUGS (7)
  1. CARDIZEM [Concomitant]
     Indication: HYPERTENSION
     Dosage: 180 MG
     Route: 048
  2. LISINOPRIL [Concomitant]
     Indication: HYPERTENSION
     Dosage: 5 MG
     Route: 048
  3. PRADAXA [Suspect]
     Indication: ATRIAL FIBRILLATION
     Dosage: 300 MG
     Route: 048
     Dates: start: 20110420
  4. LIPITOR [Concomitant]
     Indication: BLOOD CHOLESTEROL INCREASED
     Dosage: 20 MG
     Route: 048
  5. GLUCOVANCE [Concomitant]
     Indication: DIABETES MELLITUS
     Route: 048
  6. THYROXINE [Concomitant]
     Indication: HYPOTHYROIDISM
     Dosage: 25 MG
     Route: 048
  7. METOPROLOL SUCCINATE [Concomitant]
     Indication: HYPERTENSION
     Dosage: 50 MG
     Route: 048

REACTIONS (2)
  - DYSURIA [None]
  - POLLAKIURIA [None]
